FAERS Safety Report 5110365-3 (Version None)
Quarter: 2006Q3

REPORT INFORMATION
  Report Type: 
  Country: None (occurrence: None)
  Receive Date: 20060915
  Receipt Date: 20060911
  Transmission Date: 20061208
  Serious: Yes (Other)
  Sender: FDA-Public Use
  Company Number: GBWYE852905SEP06

PATIENT
  Age: 48 Year
  Sex: Male

DRUGS (3)
  1. REFACTO [Suspect]
     Indication: FACTOR VIII DEFICIENCY
     Dosage: 3000IU, 3 IN 1 WEEK
     Route: 042
     Dates: start: 20060419, end: 20060904
  2. COMBIVIR [Concomitant]
  3. NEVIRAPINE [Concomitant]

REACTIONS (2)
  - FACTOR VIII INHIBITION [None]
  - MUSCLE HAEMORRHAGE [None]
